FAERS Safety Report 5843245-6 (Version None)
Quarter: 2008Q3

REPORT INFORMATION
  Report Type: 
  Country: None (occurrence: None)
  Receive Date: 20080813
  Receipt Date: 20080807
  Transmission Date: 20090109
  Serious: Yes (Death, Hospitalization)
  Sender: FDA-Public Use
  Company Number: PHBS2008DK05323

PATIENT

DRUGS (6)
  1. CYCLOSPORINE [Suspect]
  2. IRRADIATION [Concomitant]
     Indication: STEM CELL TRANSPLANT
     Dosage: 3 GY, ONCE/SINGLE
  3. PENTOSTATIN [Concomitant]
     Indication: STEM CELL TRANSPLANT
     Route: 042
  4. BUSULFAN [Concomitant]
     Indication: STEM CELL TRANSPLANT
     Dosage: 0.8 MG/KG X 16
     Route: 042
  5. CYCLOPHOSPHAMIDE [Concomitant]
     Indication: STEM CELL TRANSPLANT
     Dosage: 60 MG/KG, BID
  6. METHOTREXATE [Concomitant]
     Indication: PROPHYLAXIS AGAINST GRAFT VERSUS HOST DISEASE

REACTIONS (3)
  - GRAFT VERSUS HOST DISEASE [None]
  - TRANSFUSION MICROCHIMERISM [None]
  - TRANSPLANT REJECTION [None]
